FAERS Safety Report 21351756 (Version 1)
Quarter: 2022Q3

REPORT INFORMATION
  Report Type: Spontaneous
  Country: RU (occurrence: RU)
  Receive Date: 20220919
  Receipt Date: 20220919
  Transmission Date: 20221027
  Serious: Yes (Other)
  Sender: FDA-Public Use
  Company Number: RU-JNJFOC-20220937759

PATIENT
  Age: 48 Year
  Sex: Female

DRUGS (1)
  1. TRABECTEDIN [Suspect]
     Active Substance: TRABECTEDIN
     Indication: Liposarcoma
     Dosage: TOTAL DOSE GIVEN 2.55 MG
     Route: 041

REACTIONS (3)
  - Neutropenia [Recovering/Resolving]
  - Pneumonia [Recovering/Resolving]
  - Cell death [Recovering/Resolving]
